FAERS Safety Report 7177198-8 (Version None)
Quarter: 2010Q4

REPORT INFORMATION
  Report Type: 
  Country: None (occurrence: None)
  Receive Date: 20101220
  Receipt Date: 20101213
  Transmission Date: 20110411
  Serious: Yes (Other)
  Sender: FDA-Public Use
  Company Number: US-ROCHE-725094

PATIENT
  Sex: Male

DRUGS (6)
  1. PEGINTERFERON ALFA-2A [Suspect]
     Indication: HEPATITIS C
     Dosage: FORM: PREFILLED SYRINGE
     Route: 058
     Dates: start: 20100804
  2. PEGINTERFERON ALFA-2A [Suspect]
     Route: 058
  3. PEGINTERFERON ALFA-2A [Suspect]
     Route: 058
  4. PEGINTERFERON ALFA-2A [Suspect]
     Route: 058
     Dates: start: 20100925
  5. PEGINTERFERON ALFA-2A [Suspect]
     Dosage: WEEK 19 OF TREATMENT
     Route: 058
     Dates: start: 20101101
  6. RIBASPHERE [Suspect]
     Indication: HEPATITIS C
     Dosage: DIVIDED DOSES DAILY
     Route: 048
     Dates: start: 20100804

REACTIONS (10)
  - DIZZINESS [None]
  - LUNG DISORDER [None]
  - NAUSEA [None]
  - PLATELET COUNT DECREASED [None]
  - PRURITUS [None]
  - PULMONARY MASS [None]
  - RASH [None]
  - RASH PRURITIC [None]
  - URTICARIA [None]
  - VISION BLURRED [None]
